FAERS Safety Report 5376519-6 (Version None)
Quarter: 2007Q3

REPORT INFORMATION
  Report Type: 
  Country: None (occurrence: None)
  Receive Date: 20070702
  Receipt Date: 20070618
  Transmission Date: 20080115
  Serious: Yes (Hospitalization)
  Sender: FDA-Public Use
  Company Number: US-SHR-US-2007-022873

PATIENT
  Age: 39 Year
  Sex: Female

DRUGS (4)
  1. BETASERON [Suspect]
     Dosage: 8 MIU, EVERY 2D
     Route: 058
     Dates: start: 20070419
  2. KEPPRA [Concomitant]
  3. IRON PILLS [Concomitant]
  4. PROVERA [Concomitant]

REACTIONS (3)
  - CONVULSION [None]
  - HYPOAESTHESIA [None]
  - NERVOUSNESS [None]
